FAERS Safety Report 10203118 (Version 1)
Quarter: 2014Q2

REPORT INFORMATION
  Report Type: Spontaneous
  Country: US (occurrence: US)
  Receive Date: 20140529
  Receipt Date: 20140529
  Transmission Date: 20141212
  Serious: Yes (Other)
  Sender: FDA-Public Use
  Company Number: US-GLENMARK GENERICS INC.-2014GMK009547

PATIENT
  Age: 62 Year
  Sex: Male

DRUGS (3)
  1. HYDRALAZINE HCL [Suspect]
     Indication: PRODUCT USED FOR UNKNOWN INDICATION
     Dosage: 100 MG, TID
  2. ENALAPRIL [Concomitant]
     Indication: PRODUCT USED FOR UNKNOWN INDICATION
     Dosage: UNK
  3. SIMVASTATIN [Concomitant]
     Indication: PRODUCT USED FOR UNKNOWN INDICATION
     Dosage: UNK

REACTIONS (12)
  - Anti-neutrophil cytoplasmic antibody positive vasculitis [Recovered/Resolved]
  - Histone antibody positive [Recovered/Resolved]
  - Glomerulonephritis [Recovered/Resolved]
  - Renal failure acute [Recovering/Resolving]
  - Gastrointestinal polyp haemorrhage [Unknown]
  - Pulmonary haemorrhage [Unknown]
  - Anaemia [Unknown]
  - Asthenia [Unknown]
  - Weight decreased [Unknown]
  - Proteinuria [Recovering/Resolving]
  - Lung infiltration [Unknown]
  - Blood creatinine increased [Recovering/Resolving]
